FAERS Safety Report 15204494 (Version 1)
Quarter: 2018Q3

REPORT INFORMATION
  Report Type: Report from Study
  Country: HU (occurrence: HU)
  Receive Date: 20180726
  Receipt Date: 20180726
  Transmission Date: 20181010
  Serious: Yes (Other)
  Sender: FDA-Public Use
  Company Number: HU-TEVA-2018-HU-930724

PATIENT
  Age: 41 Year
  Sex: Female
  Weight: 63 kg

DRUGS (5)
  1. DUCILTIA [Concomitant]
     Indication: DEPRESSION
     Dates: start: 20160715
  2. DUCILTIA [Concomitant]
     Indication: PANIC DISORDER
  3. FRONTIN [Concomitant]
     Active Substance: ALPRAZOLAM
     Indication: DEPRESSION
     Dates: start: 20160715
  4. FRONTIN [Concomitant]
     Active Substance: ALPRAZOLAM
     Indication: PANIC DISORDER
  5. COPAXONE [Suspect]
     Active Substance: GLATIRAMER ACETATE
     Indication: MULTIPLE SCLEROSIS
     Route: 058

REACTIONS (3)
  - Hot flush [Recovered/Resolved]
  - Loss of consciousness [Recovered/Resolved]
  - Injection site atrophy [Recovering/Resolving]

NARRATIVE: CASE EVENT DATE: 201806
